FAERS Safety Report 9663343 (Version 2)
Quarter: 2014Q2

REPORT INFORMATION
  Report Type: Spontaneous
  Country: JP (occurrence: JP)
  Receive Date: 20131101
  Receipt Date: 20140411
  Transmission Date: 20141212
  Serious: Yes (Other)
  Sender: FDA-Public Use
  Company Number: JP-ALEXION PHARMACEUTICALS INC.-A201302906

PATIENT
  Sex: 0

DRUGS (4)
  1. SOLIRIS 300MG [Suspect]
     Indication: PAROXYSMAL NOCTURNAL HAEMOGLOBINURIA
     Dosage: 900 MG, Q2W
     Route: 042
     Dates: start: 2012
  2. CYCLOSPORINE [Concomitant]
     Indication: APLASTIC ANAEMIA
     Dosage: 150 MG, QD
     Route: 065
  3. CYCLOSPORINE [Concomitant]
     Dosage: 50 MG, QD
     Route: 065
  4. PREDONINE                          /00016201/ [Concomitant]
     Indication: APLASTIC ANAEMIA
     Dosage: 20 MG, QD
     Route: 065

REACTIONS (5)
  - Platelet count decreased [Unknown]
  - Anaemia [Unknown]
  - Placental disorder [Unknown]
  - Fibrin D dimer increased [Unknown]
  - Exposure during pregnancy [Recovered/Resolved]
